FAERS Safety Report 10553875 (Version 1)
Quarter: 2014Q4

REPORT INFORMATION
  Report Type: Spontaneous
  Country: US (occurrence: US)
  Receive Date: 20141030
  Receipt Date: 20141030
  Transmission Date: 20150529
  Serious: No
  Sender: FDA-Public Use
  Company Number: US-EISAI MEDICAL RESEARCH-E3810-07040-SPO-US

PATIENT
  Sex: Female
  Weight: 72 kg

DRUGS (7)
  1. XOPENEA [Concomitant]
  2. SINGULAIR [Concomitant]
     Active Substance: MONTELUKAST SODIUM
  3. PERFORMIST [Concomitant]
  4. ACIPHEX [Suspect]
     Active Substance: RABEPRAZOLE SODIUM
     Indication: REFLUX GASTRITIS
     Dosage: UNKNOWN
     Route: 048
     Dates: start: 2011, end: 2014
  5. FLONASE [Concomitant]
     Active Substance: FLUTICASONE PROPIONATE
  6. LEVALBUTEROL [Concomitant]
     Active Substance: LEVALBUTEROL
  7. DIOVAN [Concomitant]
     Active Substance: VALSARTAN

REACTIONS (1)
  - Hypersensitivity [Recovered/Resolved]

NARRATIVE: CASE EVENT DATE: 2011
